FAERS Safety Report 5623919-2 (Version None)
Quarter: 2008Q1

REPORT INFORMATION
  Report Type: 
  Country: None (occurrence: None)
  Receive Date: 20080207
  Receipt Date: 20080124
  Transmission Date: 20080703
  Serious: Yes (Hospitalization)
  Sender: FDA-Public Use
  Company Number: E3810-01551-SPO-JP

PATIENT
  Age: 78 Year
  Sex: Male
  Weight: 40 kg

DRUGS (10)
  1. RABEPRAZOLE SODIUM [Suspect]
     Indication: GASTRIC ULCER
     Dosage: 10 MG, 1 IN 1 D, ORAL
     Route: 048
     Dates: start: 20071005, end: 20071203
  2. METHYCOBAL(MECOBALAMIN) [Concomitant]
  3. BASEN (VOGLIBOSE) [Concomitant]
  4. AMARYL [Concomitant]
  5. MAGMITT (MAGNESIUM OXIDE) [Concomitant]
  6. ACTOS [Concomitant]
  7. FIOPAN (CAMOSTAT MESILATE) [Concomitant]
  8. PREDNISOLONE [Concomitant]
  9. URSO 250 [Concomitant]
  10. KINEDAK (EPALRESTAT) [Concomitant]

REACTIONS (2)
  - PLATELET COUNT DECREASED [None]
  - PURPURA [None]
